FAERS Safety Report 5333822-3 (Version None)
Quarter: 2007Q2

REPORT INFORMATION
  Report Type: 
  Country: None (occurrence: None)
  Receive Date: 20070524
  Receipt Date: 20070521
  Transmission Date: 20071010
  Serious: No
  Sender: FDA-Public Use
  Company Number: US-ASTRAZENECA-2007UW09297

PATIENT
  Age: 20 Year
  Sex: Female
  Weight: 47.6 kg

DRUGS (9)
  1. SEROQUEL [Suspect]
     Indication: AFFECTIVE DISORDER
     Route: 048
  2. SEROQUEL [Suspect]
     Indication: DEPRESSION
     Route: 048
  3. SEROQUEL [Suspect]
     Route: 048
     Dates: start: 20060707, end: 20070501
  4. SEROQUEL [Suspect]
     Route: 048
     Dates: start: 20060707, end: 20070501
  5. LAMICTAL [Concomitant]
     Indication: AFFECTIVE DISORDER
     Route: 048
     Dates: start: 20060707
  6. REMERON [Concomitant]
     Indication: DEPRESSION
     Route: 048
     Dates: start: 20070327
  7. CYMBALTA [Concomitant]
     Indication: DEPRESSION
     Dates: start: 20061201
  8. PREVACID [Concomitant]
  9. ASTHMA NEC [Concomitant]

REACTIONS (3)
  - EATING DISORDER [None]
  - WEIGHT DECREASED [None]
  - WHITE BLOOD CELL COUNT DECREASED [None]
